FAERS Safety Report 24362472 (Version 1)
Quarter: 2024Q3

REPORT INFORMATION
  Report Type: Spontaneous
  Country: US (occurrence: US)
  Receive Date: 20240925
  Receipt Date: 20240925
  Transmission Date: 20241017
  Serious: No
  Sender: NOVARTIS
  Company Number: US-002147023-NVSC2024US189817

PATIENT

DRUGS (1)
  1. KESIMPTA [Suspect]
     Active Substance: OFATUMUMAB
     Indication: Product used for unknown indication
     Route: 065

REACTIONS (16)
  - Unevaluable investigation [Unknown]
  - Back pain [Unknown]
  - Headache [Unknown]
  - Somnolence [Unknown]
  - Food craving [Unknown]
  - Disease progression [Unknown]
  - Fatigue [Unknown]
  - Bone pain [Unknown]
  - Nausea [Unknown]
  - Abdominal distension [Unknown]
  - Hypnic headache [Unknown]
  - Myalgia [Unknown]
  - COVID-19 [Unknown]
  - Drug hypersensitivity [Unknown]
  - Treatment failure [Unknown]
  - Therapeutic response shortened [Unknown]
